FAERS Safety Report 5425563-9 (Version None)
Quarter: 2007Q3

REPORT INFORMATION
  Report Type: 
  Country: None (occurrence: None)
  Receive Date: 20070824
  Receipt Date: 20070813
  Transmission Date: 20080115
  Serious: Yes (Hospitalization, Other)
  Sender: FDA-Public Use
  Company Number: US-PFIZER INC-2007066994

PATIENT
  Sex: Female

DRUGS (1)
  1. ANTITHYMOCYTE IMMUNOGLOBULIN SOLUTION, STERILE [Suspect]
     Indication: TRANSPLANT REJECTION

REACTIONS (3)
  - GRAFT COMPLICATION [None]
  - PARALYSIS [None]
  - SERUM SICKNESS [None]
